FAERS Safety Report 8977355 (Version 3)
Quarter: 2013Q1

REPORT INFORMATION
  Report Type: Spontaneous
  Country: SE (occurrence: SE)
  Receive Date: 20121220
  Receipt Date: 20130213
  Transmission Date: 20140127
  Serious: Yes (Other)
  Sender: FDA-Public Use
  Company Number: SE-BAYER-2012-133057

PATIENT
  Age: 46 Year
  Sex: Female

DRUGS (1)
  1. MIRENA [Suspect]
     Indication: MENORRHAGIA
     Dosage: 20 MCG/24HR, CONT
     Route: 015
     Dates: start: 20121119, end: 20121214

REACTIONS (9)
  - Micturition urgency [Recovering/Resolving]
  - Urinary tract pain [Recovering/Resolving]
  - Haemorrhage urinary tract [Recovered/Resolved]
  - Genital haemorrhage [Recovered/Resolved]
  - Acne [None]
  - Depressed mood [None]
  - Drug ineffective [None]
  - Urethral atrophy [None]
  - Abdominal tenderness [None]
